FAERS Safety Report 20325943 (Version 2)
Quarter: 2022Q1

REPORT INFORMATION
  Report Type: Spontaneous
  Country: US (occurrence: US)
  Receive Date: 20220112
  Receipt Date: 20220224
  Transmission Date: 20220423
  Serious: Yes (Life-Threatening)
  Sender: FDA-Public Use
  Company Number: US-CHIESI-2022CHF00045

PATIENT
  Age: 0 Year
  Sex: Male
  Weight: 1.62 kg

DRUGS (1)
  1. CUROSURF [Suspect]
     Active Substance: PORACTANT ALFA
     Indication: Product used for unknown indication
     Dosage: 4.05 MILLILITER
     Route: 007
     Dates: start: 20220103

REACTIONS (5)
  - Resuscitation [Recovering/Resolving]
  - Unevaluable event [Recovered/Resolved]
  - Endotracheal intubation complication [Recovered/Resolved]
  - Off label use [Unknown]
  - Product physical issue [Recovered/Resolved]

NARRATIVE: CASE EVENT DATE: 20220103
